FAERS Safety Report 5165662-2 (Version None)
Quarter: 2006Q4

REPORT INFORMATION
  Report Type: 
  Country: None (occurrence: None)
  Receive Date: 20061128
  Receipt Date: 20061120
  Transmission Date: 20070319
  Serious: Yes (Hospitalization)
  Sender: FDA-Public Use
  Company Number: ITWYE612321NOV06

PATIENT
  Age: 30 Year
  Sex: Male

DRUGS (4)
  1. RAPAMUNE [Suspect]
     Indication: IMMUNOSUPPRESSION
     Dates: start: 20030801
  2. CELLCEPT [Suspect]
     Dates: start: 20040601
  3. PREDNISONE TAB [Suspect]
     Indication: IMMUNOSUPPRESSION
     Dates: start: 20031101, end: 20041101
  4. PREDNISONE TAB [Suspect]
     Indication: IMMUNOSUPPRESSION
     Dates: start: 20060101

REACTIONS (8)
  - ACNE [None]
  - ALOPECIA [None]
  - ANAEMIA [None]
  - DIALYSIS [None]
  - FEELING ABNORMAL [None]
  - HIP ARTHROPLASTY [None]
  - KIDNEY TRANSPLANT REJECTION [None]
  - RENAL TRANSPLANT [None]
